FAERS Safety Report 11490046 (Version 3)
Quarter: 2015Q4

REPORT INFORMATION
  Report Type: Spontaneous
  Country: JP (occurrence: JP)
  Receive Date: 20150910
  Receipt Date: 20151113
  Transmission Date: 20160304
  Serious: Yes (Other)
  Sender: FDA-Public Use
  Company Number: PHJP2015JP015369

PATIENT
  Sex: Male

DRUGS (3)
  1. DOGMATYL [Concomitant]
     Active Substance: SULPIRIDE
     Indication: PRODUCT USED FOR UNKNOWN INDICATION
     Dosage: UNK
     Route: 065
  2. WARFARIN [Concomitant]
     Active Substance: WARFARIN
     Indication: PRODUCT USED FOR UNKNOWN INDICATION
     Dosage: UNK
     Route: 065
  3. EXELON PATCH [Suspect]
     Active Substance: RIVASTIGMINE
     Indication: DEMENTIA ALZHEIMER^S TYPE
     Dosage: 9.5 MG/ 24 HRS (PATCH 10 (CM2) CONTAINS 18MG OF REVASTIGMINE BASE)
     Route: 062

REACTIONS (3)
  - Pneumonia aspiration [Unknown]
  - Salivary hypersecretion [Not Recovered/Not Resolved]
  - Sputum increased [Not Recovered/Not Resolved]
